FAERS Safety Report 5283252-8 (Version None)
Quarter: 2007Q2

REPORT INFORMATION
  Report Type: 
  Country: None (occurrence: None)
  Receive Date: 20070402
  Receipt Date: 20070326
  Transmission Date: 20071010
  Serious: Yes (Other)
  Sender: FDA-Public Use
  Company Number: GB-GLAXOSMITHKLINE-B0464574A

PATIENT
  Age: 36 Year
  Sex: Male

DRUGS (1)
  1. ADARTREL [Suspect]
     Indication: RESTLESS LEGS SYNDROME
     Dates: start: 20070202, end: 20070206

REACTIONS (2)
  - AGGRESSION [None]
  - ANGER [None]
